FAERS Safety Report 6725533-4 (Version None)
Quarter: 2010Q2

REPORT INFORMATION
  Report Type: 
  Country: None (occurrence: None)
  Receive Date: 20100514
  Receipt Date: 20100504
  Transmission Date: 20101027
  Serious: Yes (Hospitalization, Other)
  Sender: FDA-Public Use
  Company Number: US-JNJFOC-20100504198

PATIENT
  Sex: Male
  Weight: 89.81 kg

DRUGS (15)
  1. DURAGESIC-100 [Suspect]
     Indication: PAIN
     Route: 062
  2. DURAGESIC-100 [Suspect]
     Route: 062
  3. FENTANYL CITRATE [Suspect]
     Indication: PAIN
     Route: 062
  4. FENTANYL CITRATE [Suspect]
     Route: 062
  5. FENTANYL CITRATE [Suspect]
     Route: 062
  6. FENTANYL CITRATE [Suspect]
     Route: 062
  7. FENTANYL CITRATE [Suspect]
     Route: 062
  8. FENTANYL CITRATE [Suspect]
     Indication: BACK PAIN
     Route: 062
  9. DILANTIN [Suspect]
     Indication: CONVULSION
     Route: 048
  10. VALIUM [Concomitant]
     Indication: NERVOUSNESS
     Route: 048
  11. NEXIUM [Concomitant]
     Indication: GASTROOESOPHAGEAL REFLUX DISEASE
     Route: 048
  12. TRAZODONE HCL [Concomitant]
     Indication: INSOMNIA
     Route: 048
  13. AMBIEN [Concomitant]
     Indication: INSOMNIA
     Route: 048
  14. ZOLOFT [Concomitant]
     Indication: DEPRESSION
     Route: 048
  15. LORTAB [Concomitant]
     Indication: BREAKTHROUGH PAIN
     Dosage: 10/325 MG
     Route: 048

REACTIONS (20)
  - ABDOMINAL ADHESIONS [None]
  - ABDOMINAL PAIN UPPER [None]
  - APPENDICITIS [None]
  - APPLICATION SITE REACTION [None]
  - ARTHRALGIA [None]
  - ATRIOVENTRICULAR BLOCK [None]
  - BACK INJURY [None]
  - BACK PAIN [None]
  - BLOOD CHOLESTEROL INCREASED [None]
  - CARDIAC DISORDER [None]
  - CONVULSION [None]
  - DIABETES MELLITUS [None]
  - HYPERTENSION [None]
  - INCISION SITE PAIN [None]
  - INCORRECT DRUG ADMINISTRATION RATE [None]
  - PAIN [None]
  - PRODUCT QUALITY ISSUE [None]
  - SINUS OPERATION [None]
  - WITHDRAWAL SYNDROME [None]
  - WRONG TECHNIQUE IN DRUG USAGE PROCESS [None]
